FAERS Safety Report 7301839-5 (Version None)
Quarter: 2011Q1

REPORT INFORMATION
  Report Type: 
  Country: None (occurrence: None)
  Receive Date: 20110218
  Receipt Date: 20110210
  Transmission Date: 20110831
  Serious: Yes (Hospitalization, Other)
  Sender: FDA-Public Use
  Company Number: US-ROCHE-735410

PATIENT
  Sex: Male
  Weight: 81.6 kg

DRUGS (1)
  1. ACCUTANE [Suspect]
     Indication: ACNE
     Route: 065
     Dates: start: 19810101, end: 19830101

REACTIONS (14)
  - RECTAL HAEMORRHAGE [None]
  - DIVERTICULITIS [None]
  - IRRITABLE BOWEL SYNDROME [None]
  - COLITIS [None]
  - INFLAMMATORY BOWEL DISEASE [None]
  - CROHN'S DISEASE [None]
  - ABDOMINAL PAIN [None]
  - ANAL FISSURE [None]
  - NAUSEA [None]
  - COLONIC POLYP [None]
  - ARTHRITIS [None]
  - DEPRESSION [None]
  - RECTAL POLYP [None]
  - GASTROINTESTINAL SURGERY [None]
